FAERS Safety Report 7417198-3 (Version None)
Quarter: 2011Q2

REPORT INFORMATION
  Report Type: 
  Country: None (occurrence: None)
  Receive Date: 20110415
  Receipt Date: 20110214
  Transmission Date: 20111010
  Serious: Yes (Other)
  Sender: FDA-Public Use
  Company Number: US-BAYER-201022341NA

PATIENT
  Age: 32 Year
  Sex: Female

DRUGS (2)
  1. ALBUTEROL [Concomitant]
  2. YASMIN [Suspect]
     Indication: CONTRACEPTION
     Route: 048
     Dates: start: 20040501, end: 20070201

REACTIONS (2)
  - DYSPNOEA [None]
  - PULMONARY EMBOLISM [None]
